FAERS Safety Report 12629238 (Version 1)
Quarter: 2016Q3

REPORT INFORMATION
  Report Type: Spontaneous
  Country: US (occurrence: None)
  Receive Date: 20160805
  Receipt Date: 20160805
  Transmission Date: 20161109
  Serious: Yes (Hospitalization)
  Sender: FDA-Public Use
  Company Number: None

PATIENT
  Age: 83 Year
  Sex: Male
  Weight: 95.5 kg

DRUGS (1)
  1. METOPROLOL. [Suspect]
     Active Substance: METOPROLOL
     Indication: HYPERTENSION
     Route: 048
     Dates: start: 20140626, end: 20160621

REACTIONS (5)
  - Dizziness [None]
  - Asthenia [None]
  - Vomiting [None]
  - Nausea [None]
  - Heart rate decreased [None]

NARRATIVE: CASE EVENT DATE: 20160618
